FAERS Safety Report 23210281 (Version 1)
Quarter: 2023Q4

REPORT INFORMATION
  Report Type: Spontaneous
  Country: US (occurrence: US)
  Receive Date: 20231121
  Receipt Date: 20231121
  Transmission Date: 20240110
  Serious: Yes (Other)
  Sender: FDA-Public Use
  Company Number: US-drreddys-SPO/USA/23/0186384

PATIENT
  Age: 19 Year
  Sex: Female

DRUGS (1)
  1. ZENATANE [Suspect]
     Active Substance: ISOTRETINOIN
     Indication: Acne
     Dosage: RMA ISSUE DATE:29 AUGUST 2023 12:17:22 PM; 26 SEPTEMBER 2023 11:44:59 AM; 27 OCTOBER 2023 07:59:49 A

REACTIONS (3)
  - Depression [Unknown]
  - Migraine [Unknown]
  - Decreased appetite [Unknown]
